FAERS Safety Report 8118402-9 (Version None)
Quarter: 2012Q1

REPORT INFORMATION
  Report Type: 
  Country: None (occurrence: None)
  Receive Date: 20120207
  Receipt Date: 20120201
  Transmission Date: 20120608
  Serious: Yes (Hospitalization)
  Sender: FDA-Public Use
  Company Number: GB-AMGEN-GBRCT2012000286

PATIENT
  Age: 88 Year
  Sex: Female

DRUGS (12)
  1. DIGOXIN [Concomitant]
     Dosage: 62.5 MUG, UNK
  2. LANSOPRAZOLE [Concomitant]
     Dosage: UNK UNK, QD
  3. AMITRIPTYLINE HCL [Concomitant]
  4. FERROUS SULFATE TAB [Concomitant]
     Dosage: 200 G, QD
  5. CLOPIDOGREL [Concomitant]
     Dosage: 15 MG, QD
  6. ALLOPURINOL [Concomitant]
     Dosage: UNK UNK, QD
  7. BLINDED DARBEPOETIN ALFA [Suspect]
     Indication: CARDIAC FAILURE
     Dosage: UNK UNK, Q4WK
     Route: 058
     Dates: start: 20100729
  8. CANDESARTAN CILEXETIL [Concomitant]
     Dosage: 32 MG, QD
  9. BLINDED DARBEPOETIN ALFA [Suspect]
     Dosage: UNK UNK, Q4WK
     Route: 058
     Dates: start: 20100729
  10. PLACEBO [Suspect]
     Indication: CARDIAC FAILURE
     Dosage: UNK UNK, Q4WK
     Route: 058
     Dates: start: 20100729
  11. BUMETANIDE [Concomitant]
     Dosage: UNK UNK, QD
  12. BISOPROLOL [Concomitant]
     Dosage: UNK UNK, QD

REACTIONS (1)
  - UROSEPSIS [None]
